FAERS Safety Report 9690920 (Version 3)
Quarter: 2014Q2

REPORT INFORMATION
  Report Type: Spontaneous
  Country: FR (occurrence: FR)
  Receive Date: 20131115
  Receipt Date: 20140429
  Transmission Date: 20141212
  Serious: Yes (Life-Threatening, Hospitalization)
  Sender: FDA-Public Use
  Company Number: FR-PFIZER INC-2013326127

PATIENT
  Age: 13 Year
  Sex: Female

DRUGS (3)
  1. ADVIL [Suspect]
     Indication: HEADACHE
     Dosage: UNK
     Dates: start: 20100118, end: 20100125
  2. ADVIL [Suspect]
     Indication: SINUSITIS
  3. PARACETAMOL [Suspect]
     Indication: HEADACHE
     Dosage: UNK
     Route: 048
     Dates: start: 20100109, end: 20100116

REACTIONS (6)
  - Off label use [Unknown]
  - Headache [Recovered/Resolved]
  - Intracranial pressure increased [Recovered/Resolved]
  - Sinusitis [Recovered/Resolved]
  - Empyema [Recovered/Resolved]
  - Brain empyema [Unknown]
